FAERS Safety Report 5177089-8 (Version None)
Quarter: 2006Q4

REPORT INFORMATION
  Report Type: 
  Country: None (occurrence: None)
  Receive Date: 20061207
  Receipt Date: 20061124
  Transmission Date: 20070319
  Serious: Yes (Hospitalization)
  Sender: FDA-Public Use
  Company Number: 2006145999

PATIENT
  Age: 80 Year
  Sex: Female
  Weight: 57.9 kg

DRUGS (1)
  1. SUTENT [Suspect]
     Indication: GASTROINTESTINAL STROMAL TUMOUR
     Dosage: (37.5 MG, FREQUENCY: DIE), ORAL
     Route: 048
     Dates: start: 20061026, end: 20061122

REACTIONS (5)
  - BLOOD CREATINE PHOSPHOKINASE INCREASED [None]
  - GENERAL PHYSICAL HEALTH DETERIORATION [None]
  - HYPONATRAEMIA [None]
  - HYPOTHYROIDISM [None]
  - PULMONARY OEDEMA [None]
